FAERS Safety Report 8941988 (Version 4)
Quarter: 2013Q4

REPORT INFORMATION
  Report Type: Spontaneous
  Country: GB (occurrence: GB)
  Receive Date: 20121203
  Receipt Date: 20131011
  Transmission Date: 20140711
  Serious: Yes (Other)
  Sender: FDA-Public Use
  Company Number: GB-MYLANLABS-2012S1024086

PATIENT
  Age: 70 Year
  Sex: Female
  Weight: 72 kg

DRUGS (8)
  1. ATORVASTATIN [Suspect]
     Indication: PRODUCT USED FOR UNKNOWN INDICATION
  2. CARBAMAZEPINE [Suspect]
     Indication: ANALGESIC THERAPY
  3. LANSOPRAZOLE [Suspect]
     Indication: PRODUCT USED FOR UNKNOWN INDICATION
  4. LOPERAMIDE [Suspect]
     Indication: FUNCTIONAL GASTROINTESTINAL DISORDER
  5. GLYCERYL TRINITRATE [Suspect]
     Indication: PRODUCT USED FOR UNKNOWN INDICATION
     Route: 060
  6. IBUPROFEN [Suspect]
     Indication: PRODUCT USED FOR UNKNOWN INDICATION
  7. METFORMIN [Suspect]
     Indication: PRODUCT USED FOR UNKNOWN INDICATION
  8. ISOSORBIDE MONONITRATE [Suspect]
     Indication: PRODUCT USED FOR UNKNOWN INDICATION

REACTIONS (1)
  - Colitis microscopic [Not Recovered/Not Resolved]
